FAERS Safety Report 5134378-0 (Version None)
Quarter: 2006Q4

REPORT INFORMATION
  Report Type: 
  Country: None (occurrence: None)
  Receive Date: 20061025
  Receipt Date: 20060823
  Transmission Date: 20070319
  Serious: Yes (Hospitalization)
  Sender: FDA-Public Use
  Company Number: US-BAYER-200615211BWH

PATIENT
  Age: 59 Year
  Sex: Male
  Weight: 84 kg

DRUGS (9)
  1. NEXAVAR [Suspect]
     Indication: RENAL CELL CARCINOMA STAGE UNSPECIFIED
     Dosage: TOTAL DAILY DOSE: 800 MG  UNIT DOSE: 200 MG
     Route: 048
     Dates: start: 20060711, end: 20060803
  2. NEXAVAR [Suspect]
     Dosage: AS USED: 400/200 MG  UNIT DOSE: 200 MG
     Route: 048
     Dates: start: 20061011, end: 20061016
  3. NEXAVAR [Suspect]
     Dosage: TOTAL DAILY DOSE: 800 MG  UNIT DOSE: 200 MG
     Route: 048
     Dates: start: 20060801, end: 20060823
  4. COUMADIN [Concomitant]
  5. ATENOLOL [Concomitant]
  6. LISINOPRIL [Concomitant]
  7. PERI-COLACE [Concomitant]
  8. ZOLOFT [Concomitant]
  9. OXYCODONE HCL [Concomitant]

REACTIONS (7)
  - BLISTER [None]
  - BLOOD PRESSURE INCREASED [None]
  - PAIN IN EXTREMITY [None]
  - RASH [None]
  - RENAL HAEMORRHAGE [None]
  - THROMBOSIS [None]
  - VENA CAVA THROMBOSIS [None]
